FAERS Safety Report 8273741-6 (Version None)
Quarter: 2012Q2

REPORT INFORMATION
  Report Type: 
  Country: None (occurrence: None)
  Receive Date: 20120411
  Receipt Date: 20120402
  Transmission Date: 20120825
  Serious: Yes (Hospitalization)
  Sender: FDA-Public Use
  Company Number: IT-ASTRAZENECA-2012SE21648

PATIENT
  Age: 27716 Day
  Sex: Male

DRUGS (7)
  1. ATORVASTATIN CALCIUM [Suspect]
     Indication: ACUTE CORONARY SYNDROME
     Route: 048
     Dates: start: 20120319, end: 20120325
  2. CLOPIDOGREL [Concomitant]
  3. RANITIDINE HCL [Concomitant]
  4. NITRATES [Concomitant]
  5. VALSARTAN [Concomitant]
  6. BRILIQUE [Suspect]
     Indication: ACUTE CORONARY SYNDROME
     Route: 048
     Dates: start: 20120324, end: 20120326
  7. FOLIC ACID [Concomitant]

REACTIONS (1)
  - ERYTHEMA [None]
